FAERS Safety Report 7008023-3 (Version None)
Quarter: 2010Q3

REPORT INFORMATION
  Report Type: 
  Country: None (occurrence: None)
  Receive Date: 20100922
  Receipt Date: 20100917
  Transmission Date: 20110219
  Serious: Yes (Hospitalization, Other)
  Sender: FDA-Public Use
  Company Number: PHHY2010CA43595

PATIENT
  Sex: Female

DRUGS (2)
  1. SANDOSTATIN LAR [Suspect]
     Indication: NEUROENDOCRINE TUMOUR
     Dosage: 20 MG ONCE A MONTH
     Route: 030
     Dates: start: 20100420
  2. SANDOSTATIN LAR [Suspect]
     Dosage: 20 MG, EVERY 4 WEEKS
     Route: 030

REACTIONS (13)
  - BLOOD PRESSURE INCREASED [None]
  - CROHN'S DISEASE [None]
  - DEHYDRATION [None]
  - DIARRHOEA [None]
  - FLUSHING [None]
  - GASTROINTESTINAL TUBE INSERTION [None]
  - HEADACHE [None]
  - HYPOKALAEMIA [None]
  - MALAISE [None]
  - NAUSEA [None]
  - PAIN [None]
  - PALLIATIVE CARE [None]
  - PARENTERAL NUTRITION [None]
